FAERS Safety Report 24462394 (Version 3)
Quarter: 2025Q4

REPORT INFORMATION
  Report Type: Spontaneous
  Country: US (occurrence: US)
  Receive Date: 20241018
  Receipt Date: 20251030
  Transmission Date: 20260118
  Serious: No
  Sender: UCB
  Company Number: US-UCBSA-2024036721

PATIENT
  Age: 48 Year
  Weight: 133.78 kg

DRUGS (1)
  1. BIMZELX [Suspect]
     Active Substance: BIMEKIZUMAB-BKZX
     Indication: Psoriasis
     Dosage: 320 MILLIGRAM, EV 4 WEEKS AT WEEKS 0,4, 8,12 AND 16

REACTIONS (3)
  - Skin discolouration [Unknown]
  - Injection site pain [Unknown]
  - Product dose omission issue [Unknown]
